FAERS Safety Report 6291591-7 (Version None)
Quarter: 2009Q3

REPORT INFORMATION
  Report Type: 
  Country: None (occurrence: None)
  Receive Date: 20090730
  Receipt Date: 20090730
  Transmission Date: 20100115
  Serious: Yes (Other)
  Sender: FDA-Public Use
  Company Number: None

PATIENT
  Age: 60 Year
  Sex: Male
  Weight: 77.1115 kg

DRUGS (2)
  1. MICARDIS [Suspect]
     Indication: HYPERTENSION
     Dosage: MICARDIS, DAILY, PO
     Route: 048
  2. BENICAR [Suspect]
     Indication: HYPERTENSION
     Dosage: BENICAR, DAILY, PO
     Route: 048

REACTIONS (5)
  - AGEUSIA [None]
  - ANGER [None]
  - ANOSMIA [None]
  - SINUS CONGESTION [None]
  - SINUSITIS [None]
